FAERS Safety Report 24378083 (Version 1)
Quarter: 2024Q3

REPORT INFORMATION
  Report Type: Spontaneous
  Country: US (occurrence: None)
  Receive Date: 20240927
  Receipt Date: 20240927
  Transmission Date: 20241016
  Serious: No
  Sender: Public
  Company Number: None

PATIENT
  Age: 41 Year
  Sex: Female
  Weight: 50.4 kg

DRUGS (5)
  1. .DELTA.9-TETRAHYDROCANNABINOL\HERBALS [Suspect]
     Active Substance: .DELTA.9-TETRAHYDROCANNABINOL\HERBALS
     Indication: Mental disorder
     Dosage: 1 GUMMY ORAL
     Route: 048
     Dates: start: 20240920, end: 20240920
  2. .DELTA.9-TETRAHYDROCANNABINOL\HERBALS [Suspect]
     Active Substance: .DELTA.9-TETRAHYDROCANNABINOL\HERBALS
  3. ADDERALL [Concomitant]
  4. Host Defense Mushrooms Mycommunity [Concomitant]
  5. women^s multivitamin [Concomitant]

REACTIONS (10)
  - Substance use [None]
  - Asthenia [None]
  - Dizziness [None]
  - Nausea [None]
  - Vomiting [None]
  - Hallucination, visual [None]
  - Food poisoning [None]
  - Malaise [None]
  - Job dissatisfaction [None]
  - Urine cannabinoids increased [None]

NARRATIVE: CASE EVENT DATE: 20240920
